FAERS Safety Report 5135571-3 (Version None)
Quarter: 2006Q4

REPORT INFORMATION
  Report Type: 
  Country: None (occurrence: None)
  Receive Date: 20061020
  Receipt Date: 20061009
  Transmission Date: 20070319
  Serious: Yes (Death, Other)
  Sender: FDA-Public Use
  Company Number: 2005156969

PATIENT
  Age: 48 Year
  Sex: Male

DRUGS (7)
  1. NEURONTIN [Suspect]
     Indication: BACK PAIN
     Dosage: 900 MG (300 MG,3 IN 1 D)
     Dates: start: 20020122
  2. NEURONTIN [Suspect]
     Indication: CONVULSION
     Dosage: 900 MG (300 MG,3 IN 1 D)
     Dates: start: 20020122
  3. METHADONE HCL [Concomitant]
  4. XANAX [Concomitant]
  5. LORTAB [Concomitant]
  6. SKELAXIN [Concomitant]
  7. VIOXX [Concomitant]

REACTIONS (10)
  - COMPLETED SUICIDE [None]
  - DRUG INEFFECTIVE [None]
  - GRAND MAL CONVULSION [None]
  - GUN SHOT WOUND [None]
  - INFLUENZA [None]
  - INTENTIONAL SELF-INJURY [None]
  - INTERVERTEBRAL DISC DEGENERATION [None]
  - INTERVERTEBRAL DISC PROTRUSION [None]
  - SUBARACHNOID HAEMORRHAGE [None]
  - TRAUMATIC BRAIN INJURY [None]
